FAERS Safety Report 5389874-8 (Version None)
Quarter: 2007Q3

REPORT INFORMATION
  Report Type: 
  Country: None (occurrence: None)
  Receive Date: 20070718
  Receipt Date: 20070711
  Transmission Date: 20080115
  Serious: Yes (Other)
  Sender: FDA-Public Use
  Company Number: PHBS2007JP11810

PATIENT
  Sex: Male

DRUGS (5)
  1. DIOVAN [Suspect]
     Dosage: 80 MG/DAY
     Route: 048
     Dates: start: 20070501
  2. BUFFERIN [Concomitant]
     Dosage: 81 MG, UNK
  3. PRAVASTATIN [Concomitant]
  4. MAGMITT [Concomitant]
  5. ARTIST [Concomitant]

REACTIONS (3)
  - COMPUTERISED TOMOGRAM ABNORMAL [None]
  - INTERSTITIAL LUNG DISEASE [None]
  - PYREXIA [None]
